FAERS Safety Report 22349859 (Version 1)
Quarter: 2023Q2

REPORT INFORMATION
  Report Type: Spontaneous
  Country: US (occurrence: US)
  Receive Date: 20230522
  Receipt Date: 20230522
  Transmission Date: 20230721
  Serious: Yes (Death, Hospitalization, Other)
  Sender: FDA-Public Use
  Company Number: US-TEVA-2023-US-2888855

PATIENT
  Age: 62 Year
  Sex: Female

DRUGS (3)
  1. MYCOPHENOLATE MOFETIL [Suspect]
     Active Substance: MYCOPHENOLATE MOFETIL
     Indication: Immunosuppressant drug therapy
     Route: 065
  2. PREDNISONE [Suspect]
     Active Substance: PREDNISONE
     Indication: Immunosuppressant drug therapy
     Route: 065
  3. TACROLIMUS [Suspect]
     Active Substance: TACROLIMUS
     Indication: Immunosuppressant drug therapy
     Route: 065

REACTIONS (10)
  - Clostridial infection [Fatal]
  - Sepsis [Fatal]
  - Pulseless electrical activity [Fatal]
  - Myocardial necrosis [Fatal]
  - Transplant failure [Fatal]
  - Cardiac arrest [Fatal]
  - Shock [Fatal]
  - Haemorrhage [Fatal]
  - Colitis ischaemic [Unknown]
  - Infection [Unknown]
